FAERS Safety Report 9341410 (Version 2)
Quarter: 2013Q2

REPORT INFORMATION
  Report Type: Spontaneous
  Country: DE (occurrence: DE)
  Receive Date: 20130611
  Receipt Date: 20130617
  Transmission Date: 20140414
  Serious: Yes (Congenital Anomaly, Other)
  Sender: FDA-Public Use
  Company Number: DE-RANBAXY-2013RR-69850

PATIENT
  Sex: Male
  Weight: 1.77 kg

DRUGS (2)
  1. SERTRALIN [Suspect]
     Indication: MATERNAL EXPOSURE TIMING UNSPECIFIED
     Dosage: 50 [MG/D (-25) ]; 0.-36. GESTATIONAL WEEK
     Route: 064
     Dates: start: 20090125, end: 20091007
  2. FEMIBION [Concomitant]
     Indication: MATERNAL EXPOSURE TIMING UNSPECIFIED
     Dosage: 0.4 MG/DAY; 0.-36.0. GESTATIONAL WEEK
     Route: 064

REACTIONS (4)
  - Small for dates baby [Recovered/Resolved]
  - Naevus flammeus [Unknown]
  - Haemangioma congenital [Unknown]
  - Feeding disorder neonatal [Recovered/Resolved]
